FAERS Safety Report 10191275 (Version 1)
Quarter: 2014Q2

REPORT INFORMATION
  Report Type: Spontaneous
  Country: US (occurrence: None)
  Receive Date: 20140522
  Receipt Date: 20140522
  Transmission Date: 20141212
  Serious: Yes (Disabling)
  Sender: FDA-Public Use
  Company Number: None

PATIENT
  Age: 73 Year
  Sex: Female

DRUGS (2)
  1. ENALAPRIL [Suspect]
     Indication: BLOOD PRESSURE
     Dosage: 2AM, 3 PM, TWICE DAILY, TAKEN BY MOUTH
  2. BUPROPION HCL [Suspect]
     Indication: ANXIETY
     Dosage: ONE PER DAY, ONCE DAILY, TAKEN BY MOUTH
     Route: 048

REACTIONS (9)
  - Depression [None]
  - Suicidal ideation [None]
  - Dizziness [None]
  - Fall [None]
  - Blood pressure increased [None]
  - Product formulation issue [None]
  - Product substitution issue [None]
  - Product quality issue [None]
  - Drug ineffective [None]
